FAERS Safety Report 4404902-1 (Version None)
Quarter: 2004Q3

REPORT INFORMATION
  Report Type: 
  Country: None (occurrence: None)
  Receive Date: 20040716
  Receipt Date: 20040712
  Transmission Date: 20050211
  Serious: Yes (Other)
  Sender: FDA-Public Use
  Company Number: US-JNJFOC-20040605329

PATIENT
  Age: 3 Year
  Sex: Male

DRUGS (2)
  1. CHILDREN'S MOTRIN (IBUPROFEN) [Suspect]
     Indication: PYREXIA
  2. ACETAMINOPHEN [Suspect]

REACTIONS (3)
  - DRUG HYPERSENSITIVITY [None]
  - GRAND MAL CONVULSION [None]
  - PETIT MAL EPILEPSY [None]
